FAERS Safety Report 5135682-2 (Version None)
Quarter: 2006Q4

REPORT INFORMATION
  Report Type: 
  Country: None (occurrence: None)
  Receive Date: 20061024
  Receipt Date: 20061024
  Transmission Date: 20070319
  Serious: Yes (Other)
  Sender: FDA-Public Use
  Company Number: None

PATIENT
  Age: 41 Year
  Sex: Male
  Weight: 75.3 kg

DRUGS (3)
  1. MAGNEVIST [Suspect]
     Indication: NUCLEAR MAGNETIC RESONANCE IMAGING BRAIN
     Dosage: 15 ML IV
     Route: 042
     Dates: start: 20060928
  2. MAGNEVIST [Suspect]
     Indication: VON HIPPEL-LINDAU DISEASE
     Dosage: 15 ML IV
     Route: 042
     Dates: start: 20060928
  3. ANTIDEPRESSANT [Concomitant]

REACTIONS (2)
  - SINUS CONGESTION [None]
  - SNEEZING [None]
